FAERS Safety Report 9785720 (Version 3)
Quarter: 2014Q1

REPORT INFORMATION
  Report Type: Spontaneous
  Country: JP (occurrence: JP)
  Receive Date: 20131227
  Receipt Date: 20140110
  Transmission Date: 20141002
  Serious: Yes (Death, Other)
  Sender: FDA-Public Use
  Company Number: JP-JNJFOC-20130313939

PATIENT
  Age: 61 Year
  Sex: Male
  Weight: 53 kg

DRUGS (4)
  1. ITRIZOLE [Suspect]
     Indication: FUNGAL INFECTION
     Route: 048
     Dates: start: 201007, end: 2010
  2. VELCADE [Interacting]
     Indication: PLASMA CELL MYELOMA
     Route: 042
     Dates: start: 201007
  3. VELCADE [Interacting]
     Indication: PLASMA CELL MYELOMA
     Route: 042
     Dates: end: 20110902
  4. DEXAMETHASONE [Concomitant]
     Indication: PLASMA CELL MYELOMA
     Route: 048
     Dates: start: 201007, end: 20110903

REACTIONS (4)
  - Plasma cell myeloma [Fatal]
  - Neuropathy peripheral [Unknown]
  - Drug interaction [Unknown]
  - Platelet count decreased [Recovered/Resolved]
